FAERS Safety Report 4356647-4 (Version None)
Quarter: 2004Q2

REPORT INFORMATION
  Report Type: 
  Country: None (occurrence: None)
  Receive Date: 20040507
  Receipt Date: 20040421
  Transmission Date: 20050107
  Serious: Yes (Death, Life-Threatening, Hospitalization, Other)
  Sender: FDA-Public Use
  Company Number: EWC040438926

PATIENT
  Age: 79 Year
  Sex: Male
  Weight: 78 kg

DRUGS (3)
  1. GEMCITABINE HYDROCHLORIDE-IV (GEMCITABINE) [Suspect]
     Indication: BLADDER CANCER
     Dosage: 1450 MG/1 OTHER
     Route: 050
     Dates: start: 20030630, end: 20030630
  2. CARBOPLATIN [Suspect]
     Indication: BLADDER CANCER
     Dosage: 380 MG/1 OTHER
     Route: 050
     Dates: start: 20030630, end: 20030630
  3. GM-CSF [Concomitant]

REACTIONS (4)
  - ASTHENIA [None]
  - MARKEDLY REDUCED DIETARY INTAKE [None]
  - PANCYTOPENIA [None]
  - RENAL FAILURE ACUTE [None]
